FAERS Safety Report 15164088 (Version 4)
Quarter: 2018Q4

REPORT INFORMATION
  Report Type: Report from Study
  Country: JP (occurrence: JP)
  Receive Date: 20180719
  Receipt Date: 20181019
  Transmission Date: 20190204
  Serious: Yes (Death)
  Sender: FDA-Public Use
  Company Number: JP-ACTELION-A-CH2016-141718

PATIENT
  Age: 69 Year
  Sex: Female
  Weight: 47.8 kg

DRUGS (19)
  1. FUROSEMIDE. [Concomitant]
     Active Substance: FUROSEMIDE
     Indication: HYPERTENSION
     Dosage: 40 MG, QD
     Dates: end: 20180526
  2. ALLEGRA [Concomitant]
     Active Substance: FEXOFENADINE HYDROCHLORIDE
     Indication: RASH
     Dosage: 60 MG, QD
     Dates: start: 20170221, end: 20180526
  3. UPTRAVI [Suspect]
     Active Substance: SELEXIPAG
     Dosage: 0.2 MG, QD
     Route: 048
     Dates: start: 20170119, end: 20170125
  4. RESTAMIN CORTISONE [Concomitant]
     Indication: PRURITUS
     Dosage: UNK
     Dates: start: 20170221, end: 20180526
  5. OPSUMIT [Suspect]
     Active Substance: MACITENTAN
     Indication: PULMONARY ARTERIAL HYPERTENSION
     Dosage: 10 MG, OD
     Route: 048
     Dates: start: 20160411, end: 20180526
  6. UPTRAVI [Suspect]
     Active Substance: SELEXIPAG
     Indication: PULMONARY ARTERIAL HYPERTENSION
     Dosage: 0.6 MG, BID
     Route: 048
     Dates: start: 20170128, end: 20170219
  7. UPTRAVI [Suspect]
     Active Substance: SELEXIPAG
     Dosage: 0.8 MG, BID
     Route: 048
     Dates: start: 20170220, end: 20170305
  8. UPTRAVI [Suspect]
     Active Substance: SELEXIPAG
     Dosage: 0.4 MG, BID
     Route: 048
     Dates: start: 20170126, end: 20170127
  9. UPTRAVI [Suspect]
     Active Substance: SELEXIPAG
     Dosage: 0.8 MG, BID
     Route: 048
     Dates: start: 20170522, end: 20180526
  10. RIOCIGUAT. [Suspect]
     Active Substance: RIOCIGUAT
     Indication: PULMONARY ARTERIAL HYPERTENSION
     Dosage: 1 MG, TID
     Route: 048
     Dates: start: 20160411, end: 201604
  11. BAYASPIN [Concomitant]
     Indication: PULMONARY ARTERIAL HYPERTENSION
     Dosage: 100 MG, QD
     Dates: end: 20180526
  12. ALLEGRA [Concomitant]
     Active Substance: FEXOFENADINE HYDROCHLORIDE
     Indication: PRURITUS
  13. BAYASPIN [Concomitant]
     Indication: PULMONARY EMBOLISM
  14. UPTRAVI [Suspect]
     Active Substance: SELEXIPAG
     Dosage: 0.6 MG BID
     Route: 048
     Dates: start: 20170306, end: 20170521
  15. GASTER [Concomitant]
     Active Substance: FAMOTIDINE
     Indication: PRODUCT USED FOR UNKNOWN INDICATION
     Dosage: 20 MG, QD
     Dates: end: 20180526
  16. OXYGEN. [Concomitant]
     Active Substance: OXYGEN
     Indication: PRODUCT USED FOR UNKNOWN INDICATION
  17. PL [Concomitant]
     Active Substance: ACETAMINOPHEN\CAFFEINE\PROMETHAZINE\SALICYLAMIDE
     Indication: NASOPHARYNGITIS
     Dosage: 3 DF, QD
  18. ADCIRCA [Concomitant]
     Active Substance: TADALAFIL
     Indication: PULMONARY ARTERIAL HYPERTENSION
     Dosage: 20 MG, QD
     Dates: end: 20180526
  19. MAGNESIUM OXIDE. [Concomitant]
     Active Substance: MAGNESIUM OXIDE
     Indication: PRODUCT USED FOR UNKNOWN INDICATION
     Dosage: 660 MG, QD
     Dates: end: 20180526

REACTIONS (9)
  - White blood cell count increased [Recovered/Resolved]
  - Rash [Not Recovered/Not Resolved]
  - Erythema [Unknown]
  - Myalgia [Recovered/Resolved]
  - Dyspepsia [Recovered/Resolved]
  - Nasopharyngitis [Recovered/Resolved]
  - Death [Fatal]
  - Pruritus [Unknown]
  - Diarrhoea [Recovering/Resolving]

NARRATIVE: CASE EVENT DATE: 201604
